FAERS Safety Report 12213781 (Version 1)
Quarter: 2016Q1

REPORT INFORMATION
  Report Type: Spontaneous
  Country: US (occurrence: US)
  Receive Date: 20160328
  Receipt Date: 20160328
  Transmission Date: 20160526
  Serious: Yes (Hospitalization, Other)
  Sender: FDA-Public Use
  Company Number: US-GLAXOSMITHKLINE-US2016041684

PATIENT
  Age: 67 Year
  Sex: Female

DRUGS (4)
  1. ADVAIR DISKUS [Suspect]
     Active Substance: FLUTICASONE PROPIONATE\SALMETEROL XINAFOATE
     Indication: CHRONIC OBSTRUCTIVE PULMONARY DISEASE
     Dosage: 250/50 UG
     Route: 055
     Dates: start: 201503
  2. CYMBALTA [Concomitant]
     Active Substance: DULOXETINE HYDROCHLORIDE
  3. DIAZEPAM. [Concomitant]
     Active Substance: DIAZEPAM
  4. TRAZODONE [Concomitant]
     Active Substance: TRAZODONE HYDROCHLORIDE

REACTIONS (9)
  - Underdose [Recovered/Resolved]
  - Hypothyroidism [Recovering/Resolving]
  - Eye disorder [Recovering/Resolving]
  - Oxygen saturation decreased [Recovering/Resolving]
  - Drug dose omission [Unknown]
  - Blood iron decreased [Recovering/Resolving]
  - Loss of consciousness [Recovered/Resolved]
  - Expired product administered [Recovered/Resolved]
  - Oxygen consumption [Unknown]

NARRATIVE: CASE EVENT DATE: 201603
